FAERS Safety Report 5918496-2 (Version None)
Quarter: 2008Q4

REPORT INFORMATION
  Report Type: 
  Country: None (occurrence: None)
  Receive Date: 20081014
  Receipt Date: 20081014
  Transmission Date: 20090506
  Serious: Yes (Hospitalization)
  Sender: FDA-Public Use
  Company Number: None

PATIENT
  Sex: Female
  Weight: 55.2 kg

DRUGS (10)
  1. OXALIPLATIN [Suspect]
     Indication: BILE DUCT CANCER
     Dosage: 102 MG IV EVERY 2 WEEKS
     Dates: start: 20080915, end: 20080924
  2. SORAFENIB/BAYER/200 MG DAILY [Suspect]
     Indication: BILE DUCT CANCER
     Dosage: 200 MG DAILY
     Dates: start: 20080915, end: 20081010
  3. CAPACITABINE [Concomitant]
  4. ZOFRAN [Concomitant]
  5. AMBIEN [Concomitant]
  6. IMITREX [Concomitant]
  7. INDERAL LA [Concomitant]
  8. OXYCONTIN [Concomitant]
  9. PREDNISONE TAB [Concomitant]
  10. RANITIDINE [Concomitant]

REACTIONS (4)
  - ABDOMINAL PAIN [None]
  - BLOOD BILIRUBIN INCREASED [None]
  - DISEASE PROGRESSION [None]
  - FATIGUE [None]
